FAERS Safety Report 21757765 (Version 1)
Quarter: 2022Q4

REPORT INFORMATION
  Report Type: Spontaneous
  Country: US (occurrence: None)
  Receive Date: 20221221
  Receipt Date: 20221221
  Transmission Date: 20230113
  Serious: No
  Sender: FDA-Public Use
  Company Number: US-ROCHE-2855158

PATIENT
  Sex: Female
  Weight: 61.7 kg

DRUGS (2)
  1. ACTIVASE [Suspect]
     Active Substance: ALTEPLASE
     Indication: Embolism
     Route: 042
  2. ACTIVASE [Suspect]
     Active Substance: ALTEPLASE
     Indication: Cardiovascular disorder

REACTIONS (2)
  - Wrong technique in device usage process [Unknown]
  - No adverse event [Unknown]
